FAERS Safety Report 8911623 (Version 2)
Quarter: 2012Q4

REPORT INFORMATION
  Report Type: 
  Country: GB (occurrence: GB)
  Receive Date: 20121115
  Receipt Date: 20121128
  Transmission Date: 20130627
  Serious: Yes (Other)
  Sender: FDA-Public Use
  Company Number: -SANOFI-AVENTIS-2012SA081175

PATIENT
  Age: 64 Year
  Sex: Male

DRUGS (9)
  1. CLOPIDOGREL BISULFATE [Suspect]
     Indication: THROMBOCYTOPENIA
  2. BISOPROLOL FUMARATE [Suspect]
     Indication: BLOOD PRESSURE MANAGEMENT
     Dosage: 2.5 mg, QD
     Route: 048
     Dates: start: 2011, end: 2012
  3. BISOPROLOL FUMARATE [Suspect]
     Indication: BLOOD PRESSURE MANAGEMENT
     Dosage: 1.25 mg, QD
     Route: 048
     Dates: start: 2012
  4. BISOPROLOL FUMARATE [Suspect]
     Indication: BLOOD PRESSURE MANAGEMENT
     Dosage: 1 DF, every other day
     Route: 048
  5. VERAPAMIL [Suspect]
     Indication: ATRIAL FLUTTER
  6. CYCLOPHOSPHAMIDE [Concomitant]
     Indication: NON-HODGKIN^S LYMPHOMA
  7. DOXORUBICIN [Concomitant]
     Indication: NON-HODGKIN^S LYMPHOMA
  8. PREDNISOLONE [Concomitant]
     Indication: NON-HODGKIN^S LYMPHOMA
  9. VINCRISTINE SULPHATE [Concomitant]
     Indication: NON-HODGKIN^S LYMPHOMA

REACTIONS (7)
  - Atrial flutter [Recovering/Resolving]
  - Off label use [Unknown]
  - Somnolence [Unknown]
  - Fatigue [Unknown]
  - Dizziness [Unknown]
  - Arthralgia [Unknown]
  - Abdominal pain upper [Unknown]
